FAERS Safety Report 15737292 (Version 1)
Quarter: 2018Q4

REPORT INFORMATION
  Report Type: Spontaneous
  Country: US (occurrence: US)
  Receive Date: 20181218
  Receipt Date: 20181218
  Transmission Date: 20190205
  Serious: Yes (Other)
  Sender: FDA-Public Use
  Company Number: US-BRISTOL-MYERS SQUIBB COMPANY-BMS-2018-116826

PATIENT
  Age: 73 Year
  Sex: Female

DRUGS (1)
  1. ELIQUIS [Suspect]
     Active Substance: APIXABAN
     Indication: CEREBROVASCULAR ACCIDENT PROPHYLAXIS
     Dosage: 5 MG, BID
     Route: 065
     Dates: start: 2014

REACTIONS (7)
  - Heart rate increased [Unknown]
  - Haemorrhage [Unknown]
  - Contusion [Unknown]
  - Retinal vein occlusion [Unknown]
  - Thrombosis [Unknown]
  - Cerebrovascular accident [Unknown]
  - Condition aggravated [Unknown]
